FAERS Safety Report 6822236-2 (Version None)
Quarter: 2010Q3

REPORT INFORMATION
  Report Type: 
  Country: None (occurrence: None)
  Receive Date: 20100708
  Receipt Date: 20100204
  Transmission Date: 20110219
  Serious: Yes (Other)
  Sender: FDA-Public Use
  Company Number: JP-PFIZER INC-2010012526

PATIENT
  Age: 60 Year
  Sex: Female

DRUGS (5)
  1. AMPICILLIN SODIUM/SULBACTAM SODIUM [Suspect]
     Indication: PHARYNGITIS
     Route: 042
  2. AMPICILLIN SODIUM/SULBACTAM SODIUM [Suspect]
     Indication: PNEUMONIA
  3. CEFEPIME [Suspect]
     Indication: PNEUMONIA
     Route: 042
  4. CEFEPIME [Suspect]
     Indication: PHARYNGITIS
  5. CLOZAPINE [Concomitant]

REACTIONS (3)
  - DEHYDRATION [None]
  - DIARRHOEA [None]
  - RENAL IMPAIRMENT [None]
